FAERS Safety Report 10112219 (Version 1)
Quarter: 2014Q2

REPORT INFORMATION
  Report Type: Spontaneous
  Country: JP (occurrence: JP)
  Receive Date: 20140425
  Receipt Date: 20140425
  Transmission Date: 20141212
  Serious: Yes (Death)
  Sender: FDA-Public Use
  Company Number: JP-ROXANE LABORATORIES, INC.-2014-RO-00647RO

PATIENT
  Sex: Male
  Weight: 69 kg

DRUGS (8)
  1. LITHIUM CARBONATE [Suspect]
     Indication: DEPRESSION
     Route: 065
  2. DIAZEPAM [Suspect]
     Indication: DEPRESSION
     Route: 065
  3. ZOLPIDEM [Suspect]
     Indication: DEPRESSION
     Route: 065
  4. BROTIZOLAM [Suspect]
     Indication: DEPRESSION
     Route: 065
  5. SODIUM VALPROATE [Suspect]
     Indication: DEPRESSION
     Route: 065
  6. ZOPICLONE [Suspect]
     Indication: DEPRESSION
     Route: 065
  7. FLUVOXAMINE MALEATE [Suspect]
     Indication: DEPRESSION
     Route: 065
  8. FLUNITRAZEPAM [Suspect]
     Indication: DEPRESSION
     Route: 065

REACTIONS (2)
  - Completed suicide [Fatal]
  - Serotonin syndrome [Fatal]
